FAERS Safety Report 13825626 (Version 2)
Quarter: 2017Q3

REPORT INFORMATION
  Report Type: Other
  Country: GB (occurrence: GB)
  Receive Date: 20170802
  Receipt Date: 20170907
  Transmission Date: 20171127
  Serious: Yes (Hospitalization, Other)
  Sender: FDA-Public Use
  Company Number: GB-GLENMARK PHARMACEUTICALS-2017GMK028292

PATIENT

DRUGS (16)
  1. CUBICIN [Suspect]
     Active Substance: DAPTOMYCIN
     Dosage: 700 MG, OD
     Route: 042
     Dates: start: 20170324, end: 20170508
  2. DALTEPARIN [Concomitant]
     Active Substance: DALTEPARIN
     Dosage: 500 DF, QD
     Route: 058
  3. LANSOPRAZOLE. [Concomitant]
     Active Substance: LANSOPRAZOLE
     Indication: PRODUCT USED FOR UNKNOWN INDICATION
     Dosage: 30 MG, OD
     Route: 048
  4. ACETAMINOPHEN. [Concomitant]
     Active Substance: ACETAMINOPHEN
     Indication: PAIN
     Dosage: 1 G, OD
     Route: 048
  5. LINEZOLID. [Suspect]
     Active Substance: LINEZOLID
     Indication: DEVICE RELATED INFECTION
     Dosage: 600 MG, OD
     Route: 048
     Dates: start: 20170422, end: 20170519
  6. SODIUM CHLORIDE. [Suspect]
     Active Substance: SODIUM CHLORIDE
     Indication: MEDICATION DILUTION
     Dosage: 100 ML, OD
     Route: 042
     Dates: start: 20170227, end: 20170311
  7. CUBICIN [Suspect]
     Active Substance: DAPTOMYCIN
     Indication: LOCALISED INFECTION
     Dosage: 750 MG, OD
     Route: 042
     Dates: start: 20170311, end: 20170422
  8. DALTEPARIN [Concomitant]
     Active Substance: DALTEPARIN
     Indication: THROMBOSIS PROPHYLAXIS
     Dosage: UNK, OD
     Route: 058
  9. AMLODIPINE [Concomitant]
     Active Substance: AMLODIPINE BESYLATE
     Indication: BLOOD PRESSURE MANAGEMENT
     Dosage: 5 MG, OD
     Route: 048
  10. DF118 [Concomitant]
     Indication: PAIN
     Dosage: 1 G, QID
     Route: 048
  11. PREDNISOLONE. [Concomitant]
     Active Substance: PREDNISOLONE
     Indication: PRODUCT USED FOR UNKNOWN INDICATION
     Dosage: 60 MG, OD
     Route: 048
  12. DIHYDROCODEINE [Concomitant]
     Active Substance: DIHYDROCODEINE
     Indication: ANALGESIC THERAPY
     Dosage: 30 MG, QID
     Route: 048
  13. PARACETAMOL [Concomitant]
     Active Substance: ACETAMINOPHEN
     Indication: PAIN
     Dosage: 1 G, QID
     Route: 048
  14. SENNA                              /00142201/ [Concomitant]
     Active Substance: SENNA LEAF
     Indication: LAXATIVE SUPPORTIVE CARE
     Dosage: 15 MG, OD
     Route: 048
  15. ACETAMINOPHEN. [Concomitant]
     Active Substance: ACETAMINOPHEN
     Dosage: UNK
     Route: 065
  16. CUBICIN [Suspect]
     Active Substance: DAPTOMYCIN
     Indication: DEVICE RELATED INFECTION
     Dosage: 500 MG, OD
     Route: 042
     Dates: start: 20170227, end: 20170311

REACTIONS (3)
  - Eosinophilic pneumonia [Recovering/Resolving]
  - Product use in unapproved indication [Unknown]
  - Drug eruption [Recovering/Resolving]

NARRATIVE: CASE EVENT DATE: 20170425
